FAERS Safety Report 9672528 (Version 2)
Quarter: 2013Q4

REPORT INFORMATION
  Report Type: Spontaneous
  Country: CA (occurrence: CA)
  Receive Date: 20131106
  Receipt Date: 20131115
  Transmission Date: 20140711
  Serious: Yes (Other)
  Sender: FDA-Public Use
  Company Number: CA-AMGEN-CANSP2013077753

PATIENT
  Age: 15 Year
  Sex: Female
  Weight: 63 kg

DRUGS (7)
  1. ENBREL [Suspect]
     Indication: JUVENILE IDIOPATHIC ARTHRITIS
     Dosage: 50 MG, QWK
     Route: 058
     Dates: start: 20130806
  2. ANTIINFLAMMATORY AGENTS [Concomitant]
     Dosage: UNK
  3. NAPROSYN                           /00256201/ [Concomitant]
     Indication: JUVENILE IDIOPATHIC ARTHRITIS
     Dosage: 500 MG, BID
     Route: 048
     Dates: start: 2007
  4. METHOTREXATE [Concomitant]
     Indication: JUVENILE IDIOPATHIC ARTHRITIS
     Dosage: 20 MG, QWK
     Route: 048
  5. SULFASALAZINE [Concomitant]
     Indication: JUVENILE IDIOPATHIC ARTHRITIS
     Dosage: 1000 MG, BID
     Route: 048
  6. FOLIC ACID [Concomitant]
     Indication: JUVENILE IDIOPATHIC ARTHRITIS
     Dosage: 5 MG, 4X/WEEK
     Route: 048
  7. VIT D [Concomitant]
     Dosage: 1000 IU, QD
     Route: 048

REACTIONS (5)
  - Rectal haemorrhage [Recovered/Resolved]
  - Faeces hard [Recovered/Resolved]
  - Cold sweat [Not Recovered/Not Resolved]
  - Constipation [Unknown]
  - Anal fissure [Unknown]
